FAERS Safety Report 5073293-8 (Version None)
Quarter: 2006Q3

REPORT INFORMATION
  Report Type: 
  Country: None (occurrence: None)
  Receive Date: 20060706
  Receipt Date: 20060327
  Transmission Date: 20061208
  Serious: Yes (Other)
  Sender: FDA-Public Use
  Company Number: 200611842BWH

PATIENT
  Age: 33 Year
  Sex: Male

DRUGS (2)
  1. LEVITRA [Suspect]
     Indication: ERECTILE DYSFUNCTION
     Dosage: ONCE, ORAL
     Route: 048
     Dates: start: 20060327
  2. CHOLESTEROL [Concomitant]

REACTIONS (3)
  - ERECTION INCREASED [None]
  - GENITAL RASH [None]
  - PAINFUL ERECTION [None]
